FAERS Safety Report 15634459 (Version 1)
Quarter: 2018Q4

REPORT INFORMATION
  Report Type: Spontaneous
  Country: DE (occurrence: DE)
  Receive Date: 20181119
  Receipt Date: 20181119
  Transmission Date: 20190205
  Serious: Yes (Other)
  Sender: FDA-Public Use
  Company Number: PHHY2018DE156981

PATIENT
  Age: 50 Year
  Sex: Male
  Weight: 63 kg

DRUGS (1)
  1. FORMOTEROL [Suspect]
     Active Substance: FORMOTEROL
     Indication: OBSTRUCTIVE AIRWAYS DISORDER
     Dosage: 2X T?GLICH
     Route: 055

REACTIONS (15)
  - Angina pectoris [Unknown]
  - Syncope [Unknown]
  - Tricuspid valve incompetence [Not Recovered/Not Resolved]
  - Pulmonary congestion [Unknown]
  - Blood pressure increased [Unknown]
  - Atrial fibrillation [Not Recovered/Not Resolved]
  - Right atrial dilatation [Not Recovered/Not Resolved]
  - Aortic dilatation [Not Recovered/Not Resolved]
  - Aortic valve calcification [Recovered/Resolved]
  - Heart rate increased [Unknown]
  - Left ventricular hypertrophy [Recovered/Resolved]
  - Peripheral venous disease [Unknown]
  - Asthma [Unknown]
  - Mitral valve disease [Not Recovered/Not Resolved]
  - Dyskinesia [Not Recovered/Not Resolved]

NARRATIVE: CASE EVENT DATE: 200612
